FAERS Safety Report 9774257 (Version 1)
Quarter: 2013Q4

REPORT INFORMATION
  Report Type: Spontaneous
  Country: US (occurrence: US)
  Receive Date: 20131220
  Receipt Date: 20131220
  Transmission Date: 20140711
  Serious: Yes (Other)
  Sender: FDA-Public Use
  Company Number: US-ASTRAZENECA-2013SE91094

PATIENT
  Age: 49 Year
  Sex: Female
  Weight: 83.9 kg

DRUGS (8)
  1. NEXIUM [Suspect]
     Indication: GASTROOESOPHAGEAL REFLUX DISEASE
     Route: 048
     Dates: start: 2003
  2. NEXIUM [Suspect]
     Indication: GASTROOESOPHAGEAL REFLUX DISEASE
     Route: 048
  3. DOXYCYCLINE [Concomitant]
     Indication: HIDRADENITIS
     Dosage: UNKNOWN PRN
     Route: 048
     Dates: start: 2012
  4. HYOSCYAMINE [Concomitant]
     Indication: ABDOMINAL PAIN UPPER
     Dosage: 0.125MG Q6-8H
     Route: 048
     Dates: start: 20131212
  5. NEOMYCIN POLYMYXIN DEXAMETH [Concomitant]
     Indication: BLEPHARITIS
     Dosage: UN
     Route: 048
     Dates: start: 20131128
  6. ADVIL [Concomitant]
  7. COMPAZINE [Concomitant]
     Dosage: AS REQUIRED
  8. ANTIBIOTICS [Concomitant]

REACTIONS (18)
  - Fall [Not Recovered/Not Resolved]
  - Brachial plexus injury [Not Recovered/Not Resolved]
  - Nerve compression [Not Recovered/Not Resolved]
  - Hypoaesthesia [Not Recovered/Not Resolved]
  - Embolism [Recovered/Resolved]
  - Cervical spinal stenosis [Unknown]
  - Oesophageal spasm [Not Recovered/Not Resolved]
  - Chest discomfort [Recovered/Resolved]
  - Hiatus hernia [Not Recovered/Not Resolved]
  - Staphylococcal infection [Recovered/Resolved]
  - Acne [Recovered/Resolved]
  - Rhinitis [Not Recovered/Not Resolved]
  - Regurgitation [Not Recovered/Not Resolved]
  - Abdominal discomfort [Unknown]
  - Abdominal pain upper [Not Recovered/Not Resolved]
  - Diarrhoea [Recovered/Resolved]
  - Eructation [Not Recovered/Not Resolved]
  - Off label use [Recovered/Resolved]
